FAERS Safety Report 10715746 (Version 1)
Quarter: 2015Q1

REPORT INFORMATION
  Report Type: Report from Study
  Country: CA (occurrence: CA)
  Receive Date: 20150116
  Receipt Date: 20150116
  Transmission Date: 20150721
  Serious: Yes (Death, Hospitalization, Other)
  Sender: FDA-Public Use
  Company Number: PHHY2012CA067078

PATIENT
  Age: 54 Year
  Sex: Male

DRUGS (4)
  1. ZOMETA [Suspect]
     Active Substance: ZOLEDRONIC ACID
     Dosage: 4 MG, EVERY 8 WEEKS
     Route: 042
     Dates: start: 20120925
  2. METOCLOPRAMIDE HYDROCHLORIDE. [Concomitant]
     Active Substance: METOCLOPRAMIDE HYDROCHLORIDE
     Indication: PRODUCT USED FOR UNKNOWN INDICATION
     Dosage: 10 MG, UNK
     Route: 065
  3. SUTENT [Concomitant]
     Active Substance: SUNITINIB MALATE
     Indication: PRODUCT USED FOR UNKNOWN INDICATION
     Dosage: OT, EVERY OTHER WEEK
     Route: 065
  4. ZOMETA [Suspect]
     Active Substance: ZOLEDRONIC ACID
     Indication: RENAL CELL CARCINOMA
     Dosage: 4 MG, EVERY 8 WEEKS
     Route: 042
     Dates: start: 20120731

REACTIONS (15)
  - Malaise [Not Recovered/Not Resolved]
  - Hypothyroidism [Unknown]
  - Feeling abnormal [Unknown]
  - Headache [Unknown]
  - Death [Fatal]
  - Asthenia [Unknown]
  - Pain [Not Recovered/Not Resolved]
  - Influenza like illness [Unknown]
  - Back pain [Not Recovered/Not Resolved]
  - Dry skin [Unknown]
  - General physical health deterioration [Unknown]
  - Jaundice [Unknown]
  - Nausea [Unknown]
  - Pyrexia [Unknown]
  - Fatigue [Unknown]

NARRATIVE: CASE EVENT DATE: 20150108
